FAERS Safety Report 13517438 (Version 3)
Quarter: 2017Q2

REPORT INFORMATION
  Report Type: Spontaneous
  Country: IT (occurrence: IT)
  Receive Date: 20170505
  Receipt Date: 20170518
  Transmission Date: 20170830
  Serious: Yes (Other)
  Sender: FDA-Public Use
  Company Number: IT-PFIZER INC-2017196975

PATIENT
  Age: 75 Year
  Sex: Female

DRUGS (3)
  1. ATENOLOL. [Suspect]
     Active Substance: ATENOLOL
     Dosage: 25 MG, DAILY
     Route: 048
  2. ATENOLOL. [Suspect]
     Active Substance: ATENOLOL
     Indication: HEADACHE
     Dosage: 50 MG, DAILY
     Route: 048
     Dates: start: 20160101, end: 20160627
  3. STUGERON [Concomitant]
     Active Substance: CINNARIZINE

REACTIONS (6)
  - Product use in unapproved indication [Unknown]
  - Loss of consciousness [Unknown]
  - Vision blurred [Unknown]
  - Syncope [Unknown]
  - Hyperhidrosis [Unknown]
  - Bradycardia [Unknown]

NARRATIVE: CASE EVENT DATE: 20160627
